FAERS Safety Report 5920323-4 (Version None)
Quarter: 2008Q4

REPORT INFORMATION
  Report Type: 
  Country: None (occurrence: None)
  Receive Date: 20081016
  Receipt Date: 20081007
  Transmission Date: 20090506
  Serious: Yes (Other)
  Sender: FDA-Public Use
  Company Number: PHHY2008ZA22184

PATIENT
  Sex: Male

DRUGS (3)
  1. ZOMETA [Suspect]
     Dosage: 4 MG
     Dates: end: 20070201
  2. RADIOTHERAPY [Concomitant]
  3. GLUCOVANCE [Concomitant]
     Indication: DIABETES MELLITUS
     Dosage: ONE PER DAY

REACTIONS (8)
  - BLOOD CHOLESTEROL INCREASED [None]
  - BONE DISORDER [None]
  - HYPOAESTHESIA [None]
  - HYPOAESTHESIA ORAL [None]
  - IMPAIRED HEALING [None]
  - JAW DISORDER [None]
  - METASTASIS [None]
  - TOOTH EXTRACTION [None]
